FAERS Safety Report 6738580-3 (Version None)
Quarter: 2010Q2

REPORT INFORMATION
  Report Type: 
  Country: None (occurrence: None)
  Receive Date: 20100524
  Receipt Date: 20100517
  Transmission Date: 20101027
  Serious: Yes (Other)
  Sender: FDA-Public Use
  Company Number: FR-PFIZER INC-2010061313

PATIENT
  Age: 71 Year
  Sex: Female

DRUGS (6)
  1. SOLU-MEDROL [Suspect]
     Dosage: 2 DF/DAY
     Route: 042
     Dates: start: 20100107, end: 20100111
  2. PARACETAMOL [Interacting]
     Dosage: 3 DF/DAY
     Route: 042
     Dates: start: 20100107, end: 20100111
  3. PREVISCAN [Interacting]
     Dosage: 20 MG/DAY
     Route: 048
  4. LIPANTHYL [Concomitant]
     Dosage: 145 MG, UNK
     Route: 048
  5. LANZOR [Concomitant]
     Dosage: 30 MG, UNK
     Route: 048
  6. TRIVASTAL [Concomitant]
     Dosage: 50 MG, UNK
     Route: 048

REACTIONS (2)
  - DRUG INTERACTION [None]
  - INTERNATIONAL NORMALISED RATIO INCREASED [None]
